FAERS Safety Report 8326679 (Version 2)
Quarter: 2013Q2

REPORT INFORMATION
  Report Type: Spontaneous
  Country: US (occurrence: None)
  Receive Date: 20111229
  Receipt Date: 20130206
  Transmission Date: 20140414
  Serious: Yes (Hospitalization)
  Sender: FDA-Public Use
  Company Number: DAV-AE-MTX-11-068

PATIENT
  Age: 43 Year
  Sex: Female
  Weight: 74.1 kg

DRUGS (8)
  1. METHOTREXATE [Suspect]
     Indication: RHEUMATOID ARTHRITIS
     Dosage: 1 IN 1 WEEK, PO
     Route: 048
     Dates: start: 20110527, end: 20110916
  2. HUMIRA [Suspect]
     Indication: RHEUMATOID ARTHRITIS
     Route: 058
  3. NEXIUM ESOMEPRAZOLE SODIUM (ESOMEPRAZOLE SODIUM0 [Concomitant]
  4. PALQUENIL HYDROXYCHLOROQUINE PHOSPHATE (HYDROXYCHOLOROQUINE PHOSPHATE) [Concomitant]
  5. DIOVAN HCT CO-DIOVAN (TABLETS) (HYDROCHLOROTHIZIDE, VALSARTAN) [Concomitant]
  6. METOPROLOL (METOPROLOL) (METROPROLOL) [Concomitant]
  7. ASPIRIN ACETYLSALICYLIC ACID (ACETYLSALICYLIC ACID) [Concomitant]
  8. FOLIC ACID [Concomitant]

REACTIONS (3)
  - ANAEMIA [None]
  - ASTHENIA [None]
  - CONDITION AGGRAVATED [None]
